FAERS Safety Report 11715443 (Version 2)
Quarter: 2015Q4

REPORT INFORMATION
  Report Type: Spontaneous
  Country: US (occurrence: US)
  Receive Date: 20151104
  Receipt Date: 20151110
  Transmission Date: 20160304
  Serious: Yes (Other)
  Sender: FDA-Public Use
  Company Number: US-ELI_LILLY_AND_COMPANY-US201108006418

PATIENT
  Age: 78 Year
  Sex: Female
  Weight: 58.05 kg

DRUGS (11)
  1. FORTEO [Suspect]
     Active Substance: TERIPARATIDE
     Indication: OSTEOPOROSIS
     Dosage: 20 UG, QD
     Route: 058
     Dates: start: 20110809, end: 20110825
  2. DOCUSATE [Concomitant]
     Active Substance: DOCUSATE
     Dosage: 600 MG, QD
  3. CENTRUM SILVER [Concomitant]
     Active Substance: MINERALS\VITAMINS
     Dosage: UNK, QD
  4. FORTEO [Suspect]
     Active Substance: TERIPARATIDE
     Dosage: 20 UG, QD
     Route: 058
  5. METOPROLOL [Concomitant]
     Active Substance: METOPROLOL
     Dosage: 50 MG, QD
  6. ASA [Concomitant]
     Active Substance: ASPIRIN
     Dosage: 81 MG, QD
  7. CALTRATE WITH VITAMIN D [Concomitant]
     Active Substance: CALCIUM CARBONATE\CHOLECALCIFEROL
     Dosage: 600 MG, QD
  8. VITAMIN A [Concomitant]
     Active Substance: VITAMIN A
     Dosage: 1000 U, QD
  9. CARBIDOPA AND LEVODOPA [Concomitant]
     Active Substance: CARBIDOPA\LEVODOPA
     Dosage: UNK, TID
  10. LEVOTHYROXINE. [Concomitant]
     Active Substance: LEVOTHYROXINE
     Dosage: 112 UG, QD
  11. TYLENOL [Concomitant]
     Active Substance: ACETAMINOPHEN
     Dosage: 500 MG, QD

REACTIONS (8)
  - Blood pressure increased [Unknown]
  - Asthenia [Not Recovered/Not Resolved]
  - Adverse event [Recovered/Resolved]
  - Dizziness [Not Recovered/Not Resolved]
  - Feeling abnormal [Unknown]
  - Malaise [Not Recovered/Not Resolved]
  - Palpitations [Recovered/Resolved]
  - Fatigue [Recovered/Resolved]

NARRATIVE: CASE EVENT DATE: 201108
